FAERS Safety Report 9684474 (Version 1)
Quarter: 2013Q4

REPORT INFORMATION
  Report Type: Report from Study
  Country: US (occurrence: US)
  Receive Date: 20131112
  Receipt Date: 20131112
  Transmission Date: 20140711
  Serious: Yes (Other)
  Sender: FDA-Public Use
  Company Number: US-PURDUE-USA-2013-0108330

PATIENT
  Age: 57 Year
  Sex: Female

DRUGS (1)
  1. OXY CR [Suspect]
     Indication: PRODUCT USED FOR UNKNOWN INDICATION
     Dosage: 120 MG, Q12H
     Route: 048
     Dates: start: 20131007

REACTIONS (2)
  - Skin cancer [Unknown]
  - Swelling [Unknown]
